FAERS Safety Report 24106751 (Version 2)
Quarter: 2024Q3

REPORT INFORMATION
  Report Type: Spontaneous
  Country: US (occurrence: US)
  Receive Date: 20240717
  Receipt Date: 20240802
  Transmission Date: 20241017
  Serious: Yes (Hospitalization, Other)
  Sender: MERCK
  Company Number: US-MIRATI-MT2024CT05770

PATIENT
  Age: 58 Year
  Sex: Male
  Weight: 65.23 kg

DRUGS (36)
  1. KEYTRUDA [Suspect]
     Active Substance: PEMBROLIZUMAB
     Indication: Non-small cell lung cancer
     Dosage: 200 MILLIGRAM, Q3W
     Route: 042
     Dates: start: 20220114
  2. KEYTRUDA [Suspect]
     Active Substance: PEMBROLIZUMAB
     Dosage: 400 MILLIGRAM, EVERY 6 WEEKS
     Route: 042
     Dates: end: 20231229
  3. KEYTRUDA [Suspect]
     Active Substance: PEMBROLIZUMAB
     Dosage: 400 MILLIGRAM, EVERY 6 WEEKS
     Route: 042
  4. ADAGRASIB [Suspect]
     Active Substance: ADAGRASIB
     Indication: Non-small cell lung cancer
     Dosage: 400 MG, BID
     Route: 048
     Dates: start: 20220114
  5. ADAGRASIB [Suspect]
     Active Substance: ADAGRASIB
     Dosage: 400 MG, QD. CYCLE NO.32
     Route: 048
     Dates: end: 20240110
  6. TESTOPEL [Concomitant]
     Active Substance: TESTOSTERONE
     Indication: Androgen deficiency
     Dosage: 150 MG, EVERY 6 MONTHS
     Route: 058
     Dates: start: 2019
  7. ULTRAM [Concomitant]
     Active Substance: TRAMADOL HYDROCHLORIDE
     Indication: Back pain
     Dosage: TOTAL DAILY DOSE: 50 MG, 2-3 TIMES PER DAY, PRN
     Route: 030
     Dates: start: 2010
  8. ULTRAM [Concomitant]
     Active Substance: TRAMADOL HYDROCHLORIDE
     Indication: Arthralgia
  9. ULTRAM [Concomitant]
     Active Substance: TRAMADOL HYDROCHLORIDE
     Indication: Bone pain
  10. NUVIGIL [Concomitant]
     Active Substance: ARMODAFINIL
     Indication: Narcolepsy
     Dosage: 150 MG, QD
     Route: 048
     Dates: start: 2019
  11. DICLOFENAC [Concomitant]
     Active Substance: DICLOFENAC
     Indication: Back pain
     Dosage: 150 MG, QD
     Route: 048
     Dates: start: 2019
  12. DICLOFENAC [Concomitant]
     Active Substance: DICLOFENAC
     Indication: Arthralgia
  13. PYRIDOXINE [Concomitant]
     Active Substance: PYRIDOXINE
     Indication: Supplementation therapy
     Dosage: 100 MG, QD
     Route: 048
     Dates: start: 2019
  14. LORAZEPAM [Concomitant]
     Active Substance: LORAZEPAM
     Indication: Anxiety
     Dosage: 1 MG, 1-2 TIMES PER DAY
     Route: 048
     Dates: start: 20220107
  15. PERCOCET [Concomitant]
     Active Substance: ACETAMINOPHEN\OXYCODONE HYDROCHLORIDE
     Indication: Back pain
     Dosage: 1-2 TABS (5MG-325MG) Q4-6HOURS, PRN
     Route: 048
     Dates: start: 201803
  16. PERCOCET [Concomitant]
     Active Substance: ACETAMINOPHEN\OXYCODONE HYDROCHLORIDE
     Indication: Pelvic pain
     Dosage: 1-2 TABS (5MG-325MG) Q4-6HOURS, PRN
     Route: 048
     Dates: start: 20220318
  17. CYMBALTA [Concomitant]
     Active Substance: DULOXETINE HYDROCHLORIDE
     Indication: Ulnar nerve injury
     Dosage: 30 MG, QD
     Route: 048
     Dates: start: 20221014
  18. CYMBALTA [Concomitant]
     Active Substance: DULOXETINE HYDROCHLORIDE
     Indication: Paraesthesia
  19. VICKS DAYQUIL [Concomitant]
     Active Substance: DEXTROMETHORPHAN HYDROBROMIDE\GUAIFENESIN
     Indication: Upper respiratory tract congestion
     Dosage: 2 CAPSULES (325MG,10MG,5MG)EVERY 6-8 HOURS, PRN
     Route: 048
     Dates: start: 20221124
  20. VICKS DAYQUIL [Concomitant]
     Active Substance: DEXTROMETHORPHAN HYDROBROMIDE\GUAIFENESIN
     Indication: Pyrexia
  21. VICKS DAYQUIL [Concomitant]
     Active Substance: DEXTROMETHORPHAN HYDROBROMIDE\GUAIFENESIN
     Indication: Upper respiratory tract infection
  22. VICKS DAYQUIL [Concomitant]
     Active Substance: DEXTROMETHORPHAN HYDROBROMIDE\GUAIFENESIN
     Indication: Nasal congestion
  23. VICKS NYQUIL [Concomitant]
     Active Substance: ACETAMINOPHEN\DEXTROMETHORPHAN HYDROBROMIDE\DOXYLAMINE SUCCINATE
     Indication: Upper respiratory tract congestion
     Dosage: 2 PILLS(325MG,10MG,5MG,12.5MG)PRIOR TO BED, PRN
     Route: 048
     Dates: start: 20221124
  24. VICKS NYQUIL [Concomitant]
     Active Substance: ACETAMINOPHEN\DEXTROMETHORPHAN HYDROBROMIDE\DOXYLAMINE SUCCINATE
     Indication: Pyrexia
  25. VICKS NYQUIL [Concomitant]
     Active Substance: ACETAMINOPHEN\DEXTROMETHORPHAN HYDROBROMIDE\DOXYLAMINE SUCCINATE
     Indication: Upper respiratory tract infection
  26. VICKS NYQUIL [Concomitant]
     Active Substance: ACETAMINOPHEN\DEXTROMETHORPHAN HYDROBROMIDE\DOXYLAMINE SUCCINATE
     Indication: Nasal congestion
  27. K PHOS NEUTRAL [Concomitant]
     Active Substance: POTASSIUM PHOSPHATE, MONOBASIC\SODIUM PHOSPHATE, DIBASIC, ANHYDROUS\SODIUM PHOSPHATE, MONOBASIC, MON
     Indication: Hypophosphataemia
     Dosage: 250 MG, QD
     Route: 048
     Dates: start: 20220722
  28. KETAMINE [Concomitant]
     Active Substance: KETAMINE
     Indication: Depression
     Dosage: DOSING CHANGES WITH EACH SESSION
     Route: 048
     Dates: start: 20221109
  29. PROCHLORPERAZINE [Concomitant]
     Active Substance: PROCHLORPERAZINE
     Indication: Nausea
     Dosage: 10 MG, Q6 HOURS, PRN
     Route: 048
     Dates: start: 20220722
  30. HYDROMORPHONE [Concomitant]
     Active Substance: HYDROMORPHONE
     Indication: Cancer pain
     Dosage: 2 MG, Q6 HOURS, PRN
     Route: 048
     Dates: start: 20231222
  31. HYDROMORPHONE [Concomitant]
     Active Substance: HYDROMORPHONE
     Indication: Myalgia
     Dosage: 1 MG, Q6 HOURS, PRN
     Route: 048
     Dates: start: 2022, end: 20231221
  32. MILK OF MAGNESIA [Concomitant]
     Active Substance: MAGNESIUM HYDROXIDE
     Indication: Constipation
     Dosage: 1200 MG, DRINK A FULL GLASS(8OZ) OF LIQUID W/ EACH DOSE
     Route: 048
     Dates: start: 202310
  33. MOTRIN [Concomitant]
     Active Substance: IBUPROFEN
     Indication: Cancer pain
     Dosage: 600 MG, BID
     Route: 048
     Dates: start: 20231229
  34. MOTRIN [Concomitant]
     Active Substance: IBUPROFEN
     Indication: Myalgia
  35. TYLENOL [Concomitant]
     Active Substance: ACETAMINOPHEN
     Indication: Cancer pain
     Dosage: 500 MG, TAKE 1-3 TABLETS, PRN
     Route: 048
     Dates: start: 20231222
  36. TYLENOL [Concomitant]
     Active Substance: ACETAMINOPHEN
     Indication: Myalgia

REACTIONS (1)
  - Pericardial effusion [Recovered/Resolved]

NARRATIVE: CASE EVENT DATE: 20240110
